FAERS Safety Report 9638448 (Version 2)
Quarter: 2013Q4

REPORT INFORMATION
  Report Type: Spontaneous
  Country: US (occurrence: US)
  Receive Date: 20131022
  Receipt Date: 20131216
  Transmission Date: 20140711
  Serious: Yes (Other)
  Sender: FDA-Public Use
  Company Number: US-ASTELLAS-2013US010736

PATIENT
  Sex: Male
  Weight: 100 kg

DRUGS (1)
  1. PROGRAF [Suspect]
     Indication: HEART TRANSPLANT
     Dosage: 7 MG, UID/QD
     Route: 048
     Dates: start: 19980125

REACTIONS (1)
  - Angiopathy [Recovering/Resolving]
